FAERS Safety Report 9416342 (Version 1)
Quarter: 2013Q3

REPORT INFORMATION
  Report Type: Spontaneous
  Country: US (occurrence: US)
  Receive Date: 20130724
  Receipt Date: 20130724
  Transmission Date: 20140515
  Serious: Yes (Other)
  Sender: FDA-Public Use
  Company Number: US-JNJCP-30000170975

PATIENT
  Age: 59 Year
  Sex: Female
  Weight: 82 kg

DRUGS (29)
  1. NEUTROGENA BEACH DEFENSE WATER + SUN BARRIER LOTION SUNSCREEN SPF 70 [Suspect]
     Indication: PROPHYLAXIS
     Dosage: APPLIED A QUARTER SIZE AMOUNT ON LEGS,ARMS,BACK AND FACE AND REAPPLIED AS NEEDED
     Route: 061
     Dates: start: 20130705, end: 20130705
  2. NO DRUG NAME [Concomitant]
  3. NO DRUG NAME [Concomitant]
  4. NO DRUG NAME [Concomitant]
  5. NO DRUG NAME [Concomitant]
  6. NO DRUG NAME [Concomitant]
  7. NO DRUG NAME [Concomitant]
  8. NO DRUG NAME [Concomitant]
  9. NO DRUG NAME [Concomitant]
  10. NO DRUG NAME [Concomitant]
  11. NO DRUG NAME [Concomitant]
  12. NO DRUG NAME [Concomitant]
  13. NO DRUG NAME [Concomitant]
  14. NO DRUG NAME [Concomitant]
  15. NO DRUG NAME [Concomitant]
  16. NO DRUG NAME [Concomitant]
  17. NO DRUG NAME [Concomitant]
  18. NO DRUG NAME [Concomitant]
  19. NO DRUG NAME [Concomitant]
  20. NO DRUG NAME [Concomitant]
  21. NO DRUG NAME [Concomitant]
  22. NO DRUG NAME [Concomitant]
  23. NO DRUG NAME [Concomitant]
  24. NO DRUG NAME [Concomitant]
  25. NO DRUG NAME [Concomitant]
  26. NO DRUG NAME [Concomitant]
  27. NO DRUG NAME [Concomitant]
  28. NO DRUG NAME [Concomitant]
  29. NO DRUG NAME [Concomitant]

REACTIONS (6)
  - Dyspnoea [Recovered/Resolved]
  - Application site swelling [Recovered/Resolved]
  - Hyperhidrosis [Recovered/Resolved]
  - Throat irritation [Recovered/Resolved]
  - Product lot number issue [Unknown]
  - Hypersensitivity [Recovered/Resolved]
